FAERS Safety Report 12134278 (Version 3)
Quarter: 2016Q2

REPORT INFORMATION
  Report Type: Report from Study
  Country: US (occurrence: US)
  Receive Date: 20160301
  Receipt Date: 20160413
  Transmission Date: 20160815
  Serious: Yes (Hospitalization, Other)
  Sender: FDA-Public Use
  Company Number: US-GLAXOSMITHKLINE-US2016GSK026134

PATIENT
  Age: 73 Year
  Sex: Female
  Weight: 68.27 kg

DRUGS (14)
  1. PREDNISONE. [Suspect]
     Active Substance: PREDNISONE
     Indication: SYSTEMIC LUPUS ERYTHEMATOSUS
     Dosage: 5 MG, 1D
     Route: 048
     Dates: start: 20140831
  2. INVOKANA [Concomitant]
     Active Substance: CANAGLIFLOZIN
     Dosage: 100 MG, UNK
     Dates: start: 20150204
  3. ASPIRIN. [Concomitant]
     Active Substance: ASPIRIN
     Dosage: 81 MG, UNK
     Dates: start: 20150906
  4. ALPRAZOLAM. [Concomitant]
     Active Substance: ALPRAZOLAM
     Dosage: 0.5 MG, UNK
     Dates: start: 20160210
  5. CEVIMELINE. [Concomitant]
     Active Substance: CEVIMELINE
     Dosage: UNK
     Dates: start: 20030801
  6. AZATHIOPRINE. [Suspect]
     Active Substance: AZATHIOPRINE
     Indication: SYSTEMIC LUPUS ERYTHEMATOSUS
     Dosage: 75 MG, 1D
     Route: 048
     Dates: start: 20030611
  7. FLAXSEED [Concomitant]
     Active Substance: FLAX SEED
     Dosage: UNK
     Dates: start: 20131121
  8. HYDROCODEINE + PARACETAMOL [Concomitant]
     Dosage: UNK
     Dates: start: 20100101
  9. OXYBUTIN [Concomitant]
     Active Substance: OXYBUTYNIN
     Dosage: UNK
     Dates: start: 20130923
  10. BELIMUMAB [Suspect]
     Active Substance: BELIMUMAB
     Indication: SYSTEMIC LUPUS ERYTHEMATOSUS
     Dosage: UNK, CYC
     Dates: start: 20060201
  11. SIMVASTATIN. [Concomitant]
     Active Substance: SIMVASTATIN
  12. BOSENTAN. [Concomitant]
     Active Substance: BOSENTAN
     Dosage: UNK
     Dates: start: 20050722
  13. CALTRATE-D [Concomitant]
     Dosage: UNK
     Dates: start: 20080601
  14. LEVOTHYROXINE. [Concomitant]
     Active Substance: LEVOTHYROXINE
     Dosage: UNK
     Dates: start: 20080918

REACTIONS (2)
  - Adenocarcinoma [Not Recovered/Not Resolved]
  - Urinary tract infection [Recovered/Resolved]

NARRATIVE: CASE EVENT DATE: 20160201
